FAERS Safety Report 23416668 (Version 1)
Quarter: 2024Q1

REPORT INFORMATION
  Report Type: Spontaneous
  Country: AU (occurrence: AU)
  Receive Date: 20240118
  Receipt Date: 20240118
  Transmission Date: 20240410
  Serious: Yes (Other)
  Sender: FDA-Public Use
  Company Number: AU-OTSUKA-2024_001060

PATIENT

DRUGS (1)
  1. INQOVI [Suspect]
     Active Substance: CEDAZURIDINE\DECITABINE
     Indication: Product used for unknown indication
     Dosage: (35 MG DECITABINE AND 100 MG CEDAZURIDINE)
     Route: 065

REACTIONS (2)
  - Bone marrow failure [Unknown]
  - Cytopenia [Unknown]
